FAERS Safety Report 5806590-6 (Version None)
Quarter: 2008Q3

REPORT INFORMATION
  Report Type: 
  Country: None (occurrence: None)
  Receive Date: 20080710
  Receipt Date: 20080630
  Transmission Date: 20090109
  Serious: Yes (Hospitalization, Other)
  Sender: FDA-Public Use
  Company Number: PHHY2008BR12465

PATIENT
  Age: 13 Year
  Sex: Male
  Weight: 51 kg

DRUGS (4)
  1. TEGRETOL [Suspect]
     Indication: CONVULSION
     Dosage: 800 MG, ONCE/SINGLE
     Route: 048
     Dates: start: 20080629, end: 20080629
  2. TEGRETOL [Suspect]
     Dosage: 200 MG
     Route: 048
  3. TEGRETOL [Suspect]
     Dosage: UNK
  4. TEGRETOL [Suspect]
     Dosage: 200 MG, QD

REACTIONS (5)
  - ASTHENIA [None]
  - CONVULSION [None]
  - FEAR [None]
  - INTENTIONAL OVERDOSE [None]
  - SUICIDE ATTEMPT [None]
